FAERS Safety Report 6152820-3 (Version None)
Quarter: 2009Q2

REPORT INFORMATION
  Report Type: 
  Country: None (occurrence: None)
  Receive Date: 20090409
  Receipt Date: 20090327
  Transmission Date: 20091009
  Serious: Yes (Life-Threatening, Hospitalization)
  Sender: FDA-Public Use
  Company Number: CC-09-044

PATIENT
  Age: 81 Year
  Sex: Female
  Weight: 48 kg

DRUGS (15)
  1. POTASSIUM CHLORIDE [Suspect]
     Indication: BLOOD POTASSIUM DECREASED
     Dosage: 40 MEQ EVERY 4HR X 2 ADMINISTERED ORALLY
     Route: 048
  2. LOTREL [Concomitant]
  3. LIPITOR [Concomitant]
  4. CLONAZEPAM [Concomitant]
  5. MIRTAZAPINE [Concomitant]
  6. TOPROL-XL [Concomitant]
  7. HYZAAR [Concomitant]
  8. ASPIRIN [Concomitant]
  9. TRAMADOL HCL [Concomitant]
  10. SEROQUEL [Concomitant]
  11. CYMBALTA [Concomitant]
  12. UROXATRAL [Concomitant]
  13. VITAMIN E [Concomitant]
  14. ASCORBIC ACID [Concomitant]
  15. MULTI-VITAMIN [Concomitant]

REACTIONS (5)
  - BLOOD POTASSIUM INCREASED [None]
  - BUNDLE BRANCH BLOCK LEFT [None]
  - CHEST PAIN [None]
  - HYPOTENSION [None]
  - NODAL ARRHYTHMIA [None]
